FAERS Safety Report 6216928-6 (Version None)
Quarter: 2009Q2

REPORT INFORMATION
  Report Type: 
  Country: None (occurrence: None)
  Receive Date: 20090604
  Receipt Date: 20090520
  Transmission Date: 20091009
  Serious: Yes (Hospitalization)
  Sender: FDA-Public Use
  Company Number: A-US2009-24380

PATIENT
  Age: 56 Year
  Sex: Female

DRUGS (4)
  1. TRACLEER [Suspect]
     Dosage: 62.5 MG, BID, ORAL; ORAL
     Route: 048
     Dates: start: 20081210, end: 20090101
  2. TRACLEER [Suspect]
     Dosage: 62.5 MG, BID, ORAL; ORAL
     Route: 048
     Dates: start: 20090501
  3. LINEZOLID [Suspect]
  4. PREDNISONE TAB [Concomitant]

REACTIONS (4)
  - LIVER FUNCTION TEST ABNORMAL [None]
  - PNEUMONIA [None]
  - SINUSITIS [None]
  - STAPHYLOCOCCAL INFECTION [None]
